FAERS Safety Report 9005342 (Version 2)
Quarter: 2013Q1

REPORT INFORMATION
  Report Type: Report from Study
  Country: JP (occurrence: JP)
  Receive Date: 20130108
  Receipt Date: 20130314
  Transmission Date: 20140127
  Serious: Yes (Hospitalization)
  Sender: FDA-Public Use
  Company Number: JP-AMGEN-JPNCT2012084379

PATIENT
  Age: 91 Year
  Sex: Female
  Weight: 45 kg

DRUGS (21)
  1. DARBEPOETIN ALFA [Suspect]
     Indication: NEPHROGENIC ANAEMIA
     Dosage: 120 MUG, UNK
     Route: 058
     Dates: start: 20111216, end: 20120330
  2. DARBEPOETIN ALFA [Suspect]
     Dosage: 120 MUG, QD
     Route: 058
     Dates: start: 20120511, end: 20120511
  3. DARBEPOETIN ALFA [Suspect]
     Dosage: 120 MUG, Q4WK
     Route: 058
     Dates: start: 20120608, end: 20120803
  4. DARBEPOETIN ALFA [Suspect]
     Dosage: 120 MUG, QD
     Route: 058
     Dates: start: 20120817, end: 20120817
  5. DARBEPOETIN ALFA [Suspect]
     Dosage: 120 MUG, Q4WK
     Route: 058
     Dates: start: 20120921
  6. ONEALFA [Concomitant]
     Dosage: UNK
     Route: 048
  7. LASIX [Concomitant]
     Indication: NEPHROSCLEROSIS
     Dosage: UNK
     Route: 048
  8. ARTIST [Concomitant]
     Dosage: UNK
     Route: 048
  9. MICARDIS [Concomitant]
     Dosage: UNK
     Route: 048
  10. BAYASPIRIN [Concomitant]
     Dosage: UNK
     Route: 048
  11. CARDENALIN [Concomitant]
     Dosage: UNK
     Route: 048
  12. ALLOZYM [Concomitant]
     Dosage: UNK
     Route: 048
  13. EPADEL [Concomitant]
     Dosage: UNK
     Route: 048
  14. CONIEL [Concomitant]
     Dosage: UNK
     Route: 048
  15. RHUBARB DRY EXTRACT [Concomitant]
     Dosage: UNK
     Route: 048
  16. MARZULENE-S [Concomitant]
     Dosage: UNK
     Route: 048
  17. PANTOSIN [Concomitant]
     Dosage: UNK
     Route: 048
  18. ANPLAG [Concomitant]
     Dosage: UNK
     Route: 048
  19. ARGAMATE [Concomitant]
     Dosage: UNK
     Route: 048
  20. FRANDOL S [Concomitant]
     Dosage: UNK
     Route: 062
  21. CALONAL [Concomitant]
     Dosage: UNK
     Route: 048

REACTIONS (2)
  - Cardiac failure [Recovering/Resolving]
  - Influenza [Recovered/Resolved]
